FAERS Safety Report 6167167-9 (Version None)
Quarter: 2009Q2

REPORT INFORMATION
  Report Type: 
  Country: None (occurrence: None)
  Receive Date: 20090423
  Receipt Date: 20090414
  Transmission Date: 20091009
  Serious: Yes (Hospitalization, Other)
  Sender: FDA-Public Use
  Company Number: CHPA2009US00558

PATIENT
  Sex: Female

DRUGS (11)
  1. GAS-X (NCH) (SIMETHICONE) DISPERSIBLE TABLET [Suspect]
     Indication: GASTRIC DISORDER
     Dosage: 40-45 DF, QD, ORAL
     Route: 048
  2. GAS-X (NCH) (SIMETHICONE) DISPERSIBLE TABLET [Suspect]
     Indication: GASTROINTESTINAL HYPOMOTILITY
     Dosage: 40-45 DF, QD, ORAL
     Route: 048
  3. GAS-X EXTRA STRENGTH SOFTGELS (NCH) (SIMETHICONE) SOFT GELATIN CAPSULE [Suspect]
     Indication: GASTRIC DISORDER
     Dosage: 40-45 DF, QD, ORAL
     Route: 048
  4. GAS-X EXTRA STRENGTH SOFTGELS (NCH) (SIMETHICONE) SOFT GELATIN CAPSULE [Suspect]
     Indication: GASTROINTESTINAL HYPOMOTILITY
     Dosage: 40-45 DF, QD, ORAL
     Route: 048
  5. GAS-X (NCH) (SIMETHICONE) UNKNOWN [Suspect]
     Indication: GASTRIC DISORDER
     Dosage: 40-45 DF, QD, ORAL
     Route: 048
  6. GAS-X (NCH) (SIMETHICONE) UNKNOWN [Suspect]
     Indication: GASTROINTESTINAL HYPOMOTILITY
     Dosage: 40-45 DF, QD, ORAL
     Route: 048
  7. GAS-X EXTSTR CHEWABLE TABS CHERRY CREME (NCH) (SIMETHICONE) CHEWABLE T [Suspect]
     Indication: GASTRIC DISORDER
     Dosage: 40-45 TABLETS, QD, ORAL
     Route: 048
  8. GAS-X EXTSTR CHEWABLE TABS CHERRY CREME (NCH) (SIMETHICONE) CHEWABLE T [Suspect]
     Indication: GASTROINTESTINAL HYPOMOTILITY
     Dosage: 40-45 TABLETS, QD, ORAL
     Route: 048
  9. CYTOTEC [Suspect]
     Indication: GASTRIC DISORDER
     Dosage: ORAL
     Route: 048
     Dates: start: 19940101
  10. DULCOLAX [Suspect]
     Indication: GASTRIC DISORDER
     Dosage: ORAL
     Route: 048
     Dates: start: 19940101
  11. PROPULSID [Concomitant]

REACTIONS (12)
  - ABDOMINAL PAIN [None]
  - COLECTOMY [None]
  - CONSTIPATION [None]
  - DISEASE PROGRESSION [None]
  - DRUG INEFFECTIVE [None]
  - DYSPEPSIA [None]
  - FAECALOMA [None]
  - GASTRIC DISORDER [None]
  - ILEOSTOMY [None]
  - INTESTINAL FUNCTIONAL DISORDER [None]
  - OVERDOSE [None]
  - SMALL INTESTINAL RESECTION [None]
